FAERS Safety Report 7152286-0 (Version None)
Quarter: 2010Q4

REPORT INFORMATION
  Report Type: 
  Country: None (occurrence: None)
  Receive Date: 20101213
  Receipt Date: 20101202
  Transmission Date: 20110411
  Serious: Yes (Other)
  Sender: FDA-Public Use
  Company Number: US-SHIRE-ALL1-2010-05411

PATIENT
  Sex: Female
  Weight: 56.689 kg

DRUGS (5)
  1. MAS (MIXED AMPHETAMINE SALTS) [Suspect]
     Indication: PRODUCT USED FOR UNKNOWN INDICATION
     Dosage: 40 MG, 1X/DAY:QD
     Route: 048
     Dates: start: 20100501, end: 20100501
  2. MAS (MIXED AMPHETAMINE SALTS) [Suspect]
     Dosage: 10 MG, UNKNOWN
     Route: 048
  3. MAS (MIXED AMPHETAMINE SALTS) [Suspect]
     Dosage: UNK MG, UNKNOWN(LESS THAN 40 MG CAPSULE DAILY)
     Route: 048
  4. MAS (MIXED AMPHETAMINE SALTS) [Suspect]
     Dosage: UNK, UNKNOWN(MORE THAN 40 MG CAPSULE DAILY)
     Route: 048
  5. MAS (MIXED AMPHETAMINE SALTS) [Suspect]
     Dosage: UNK MG, UNKNOWN
     Route: 048
     Dates: start: 20100101, end: 20100101

REACTIONS (7)
  - ANXIETY [None]
  - ATTENTION DEFICIT/HYPERACTIVITY DISORDER [None]
  - CONDITION AGGRAVATED [None]
  - DEPRESSION [None]
  - DRUG INEFFECTIVE [None]
  - PRODUCT QUALITY ISSUE [None]
  - SWELLING [None]
